FAERS Safety Report 24039298 (Version 2)
Quarter: 2025Q4

REPORT INFORMATION
  Report Type: Report from Study
  Country: EU (occurrence: None)
  Receive Date: 20240702
  Receipt Date: 20251223
  Transmission Date: 20260118
  Serious: Yes (Death, Congenital Anomaly)
  Sender: UCB
  Company Number: EU-UCBSA-2024033009

PATIENT

DRUGS (3)
  1. BRIVARACETAM [Suspect]
     Active Substance: BRIVARACETAM
     Indication: Product used for unknown indication
     Dosage: 100 MILLIGRAM DAILY
  2. LAMOTRIGINE [Concomitant]
     Active Substance: LAMOTRIGINE
     Indication: Product used for unknown indication
     Dosage: UNK
  3. VALPROIC ACID [Concomitant]
     Active Substance: VALPROIC ACID
     Indication: Product used for unknown indication
     Dosage: UNK

REACTIONS (2)
  - Spina bifida [Fatal]
  - Maternal exposure during pregnancy [Unknown]
